FAERS Safety Report 9416432 (Version 4)
Quarter: 2015Q2

REPORT INFORMATION
  Report Type: Spontaneous
  Country: None (occurrence: None)
  Receive Date: 20130718
  Receipt Date: 20150402
  Transmission Date: 20150821
  Serious: Yes (Disabling, Other)
  Sender: FDA-Public Use
  Company Number: 1796704

PATIENT
  Age: 46 Year
  Sex: Female

DRUGS (4)
  1. IRINOTECAN HYDROCHLORIDE. [Suspect]
     Active Substance: IRINOTECAN HYDROCHLORIDE
     Indication: RECTAL CANCER
     Route: 041
     Dates: start: 20100419, end: 20100517
  2. FLUOROURACIL. [Concomitant]
     Active Substance: FLUOROURACIL
  3. METHOTREXATE [Concomitant]
     Active Substance: METHOTREXATE
  4. CALCIUM FOLINAT [Concomitant]

REACTIONS (13)
  - Ischaemic neuropathy [None]
  - Arterial thrombosis [None]
  - Gait disturbance [None]
  - Skin discolouration [None]
  - Neuralgia [None]
  - Peripheral artery thrombosis [None]
  - Voyeurism [None]
  - Paraesthesia [None]
  - Dyspnoea [None]
  - Visual impairment [None]
  - Peripheral swelling [None]
  - Swollen tongue [None]
  - Hypersensitivity [None]

NARRATIVE: CASE EVENT DATE: 2010
